FAERS Safety Report 15344023 (Version 1)
Quarter: 2018Q3

REPORT INFORMATION
  Report Type: Report from Study
  Country: US (occurrence: US)
  Receive Date: 20180903
  Receipt Date: 20180903
  Transmission Date: 20181010
  Serious: Yes (Hospitalization)
  Sender: FDA-Public Use
  Company Number: PHEH2018US034982

PATIENT
  Sex: Male

DRUGS (1)
  1. COSENTYX [Suspect]
     Active Substance: SECUKINUMAB
     Indication: PRODUCT USED FOR UNKNOWN INDICATION
     Route: 058

REACTIONS (6)
  - Skin exfoliation [Unknown]
  - Cellulitis [Unknown]
  - Decreased immune responsiveness [Unknown]
  - Peripheral swelling [Unknown]
  - Erythema [Unknown]
  - Concomitant disease aggravated [Unknown]
